FAERS Safety Report 7244426-X (Version None)
Quarter: 2011Q1

REPORT INFORMATION
  Report Type: 
  Country: None (occurrence: None)
  Receive Date: 20110125
  Receipt Date: 20110117
  Transmission Date: 20110831
  Serious: Yes (Disabling)
  Sender: FDA-Public Use
  Company Number: PHHY2010JP80216

PATIENT
  Sex: Female
  Weight: 54 kg

DRUGS (1)
  1. ZOMETA [Suspect]
     Indication: METASTASES TO BONE
     Dosage: 4 MG
     Route: 041
     Dates: start: 20090813

REACTIONS (10)
  - IMPAIRED HEALING [None]
  - GAMMA-GLUTAMYLTRANSFERASE INCREASED [None]
  - OSTEOMYELITIS [None]
  - OSTEOSCLEROSIS [None]
  - BONE DISORDER [None]
  - ASPARTATE AMINOTRANSFERASE INCREASED [None]
  - BLOOD LACTATE DEHYDROGENASE INCREASED [None]
  - GINGIVAL SWELLING [None]
  - FISTULA [None]
  - BLOOD ALKALINE PHOSPHATASE INCREASED [None]
